FAERS Safety Report 5280399-7 (Version None)
Quarter: 2007Q1

REPORT INFORMATION
  Report Type: 
  Country: None (occurrence: None)
  Receive Date: 20061229
  Receipt Date: 20060811
  Transmission Date: 20070707
  Serious: Yes (Other)
  Sender: FDA-Public Use
  Company Number: 2006UW16049

PATIENT
  Age: 72 Year
  Sex: Female
  Weight: 55.791 kg

DRUGS (4)
  1. CRESTOR [Suspect]
     Dosage: 5 MG DAILY PO
     Route: 048
     Dates: start: 20060701
  2. SPRIVA [Concomitant]
  3. SEREVENT [Concomitant]
  4. ALBUTEROL [Concomitant]

REACTIONS (1)
  - TREMOR [None]
